FAERS Safety Report 10247718 (Version 1)
Quarter: 2014Q2

REPORT INFORMATION
  Report Type: Spontaneous
  Country: GB (occurrence: GB)
  Receive Date: 20140619
  Receipt Date: 20140619
  Transmission Date: 20141212
  Serious: Yes (Life-Threatening)
  Sender: FDA-Public Use
  Company Number: PHHY2014GB071829

PATIENT
  Age: 34 Year
  Sex: Male
  Weight: 101 kg

DRUGS (7)
  1. PHENOXYMETHYLPENICILLIN [Suspect]
     Dates: start: 20140530
  2. ATENOLOL [Concomitant]
     Dates: start: 20140310
  3. ATORVASTATIN [Concomitant]
     Dates: start: 20140310
  4. BENDROFLUMETHIAZIDE [Concomitant]
     Dates: start: 20140310
  5. CETIRIZINE [Concomitant]
     Dates: start: 20140310
  6. NICORETTE [Concomitant]
     Dates: start: 20120117
  7. NICOTINE [Concomitant]
     Dates: start: 20120124

REACTIONS (1)
  - Abdominal discomfort [Not Recovered/Not Resolved]
